FAERS Safety Report 8426166-4 (Version None)
Quarter: 2012Q2

REPORT INFORMATION
  Report Type: 
  Country: None (occurrence: None)
  Receive Date: 20120611
  Receipt Date: 20111130
  Transmission Date: 20120825
  Serious: No
  Sender: FDA-Public Use
  Company Number: US-MYLANLABS-2011S1024861

PATIENT
  Age: 39 Year
  Sex: Male

DRUGS (5)
  1. ZOLOFT [Concomitant]
  2. DOXEPIN HYDROCHLORIDE [Suspect]
     Indication: NEURALGIA
     Route: 048
     Dates: start: 20111129, end: 20111130
  3. ADDERALL 5 [Concomitant]
  4. DOXEPIN HYDROCHLORIDE [Suspect]
     Indication: INSOMNIA
     Route: 048
     Dates: start: 20111129, end: 20111130
  5. XANAX [Concomitant]

REACTIONS (3)
  - ABNORMAL BEHAVIOUR [None]
  - AMNESIA [None]
  - HANGOVER [None]
